FAERS Safety Report 9377681 (Version 2)
Quarter: 2013Q3

REPORT INFORMATION
  Report Type: Spontaneous
  Country: CN (occurrence: CN)
  Receive Date: 20130701
  Receipt Date: 20130722
  Transmission Date: 20140515
  Serious: Yes (Other)
  Sender: FDA-Public Use
  Company Number: CN-JNJFOC-20130700382

PATIENT
  Age: 52 Year
  Sex: Male

DRUGS (1)
  1. NIZORAL [Suspect]
     Indication: ONYCHOMYCOSIS
     Route: 048
     Dates: start: 20120701, end: 20120719

REACTIONS (4)
  - Abdominal distension [Recovering/Resolving]
  - Fatigue [Recovering/Resolving]
  - Liver function test abnormal [Recovering/Resolving]
  - Decreased appetite [Recovering/Resolving]
